FAERS Safety Report 5608710-5 (Version None)
Quarter: 2008Q1

REPORT INFORMATION
  Report Type: 
  Country: None (occurrence: None)
  Receive Date: 20080131
  Receipt Date: 20080118
  Transmission Date: 20080703
  Serious: Yes (Other)
  Sender: FDA-Public Use
  Company Number: TW-PFIZER INC-2008006320

PATIENT
  Age: 90 Year

DRUGS (1)
  1. UNASYN [Suspect]
     Indication: PYREXIA
     Route: 042

REACTIONS (1)
  - HYPERKALAEMIA [None]
